FAERS Safety Report 12874180 (Version 1)
Quarter: 2016Q4

REPORT INFORMATION
  Report Type: Spontaneous
  Country: US (occurrence: US)
  Receive Date: 20161021
  Receipt Date: 20161021
  Transmission Date: 20170207
  Serious: Yes (Hospitalization)
  Sender: FDA-Public Use
  Company Number: US-CELGENEUS-USA-2016104750

PATIENT
  Age: 71 Year
  Sex: Female
  Weight: 80.36 kg

DRUGS (4)
  1. REVLIMID [Suspect]
     Active Substance: LENALIDOMIDE
     Route: 048
     Dates: start: 200812
  2. REVLIMID [Suspect]
     Active Substance: LENALIDOMIDE
     Route: 048
     Dates: start: 20140407
  3. REVLIMID [Suspect]
     Active Substance: LENALIDOMIDE
     Indication: PLASMA CELL MYELOMA
     Route: 048
     Dates: start: 200810
  4. REVLIMID [Suspect]
     Active Substance: LENALIDOMIDE
     Dosage: 5 - 10MG
     Route: 048
     Dates: start: 200904

REACTIONS (2)
  - Weight increased [Unknown]
  - Gout [Unknown]

NARRATIVE: CASE EVENT DATE: 20161011
